FAERS Safety Report 13782654 (Version 1)
Quarter: 2017Q3

REPORT INFORMATION
  Report Type: Spontaneous
  Country: JP (occurrence: JP)
  Receive Date: 20170724
  Receipt Date: 20170724
  Transmission Date: 20171127
  Serious: Yes (Other)
  Sender: FDA-Public Use
  Company Number: JP-PFIZER INC-2017291797

PATIENT
  Age: 91 Year
  Sex: Female

DRUGS (2)
  1. CELECOX [Suspect]
     Active Substance: CELECOXIB
     Dosage: 1 DF, 1X/DAY
     Route: 048
     Dates: start: 20161213, end: 20170605
  2. CELECOX [Suspect]
     Active Substance: CELECOXIB
     Dosage: 1 DF, 2X/DAY
     Route: 048
     Dates: start: 20150720, end: 20161210

REACTIONS (1)
  - Blood lactate dehydrogenase increased [Unknown]
